FAERS Safety Report 10072391 (Version 1)
Quarter: 2014Q2

REPORT INFORMATION
  Report Type: Spontaneous
  Country: FR (occurrence: FR)
  Receive Date: 20140411
  Receipt Date: 20140411
  Transmission Date: 20141212
  Serious: Yes (Hospitalization)
  Sender: FDA-Public Use
  Company Number: FR-ELI_LILLY_AND_COMPANY-FR201404001000

PATIENT
  Age: 61 Year
  Sex: Female

DRUGS (7)
  1. OPTRUMA [Suspect]
     Indication: PRODUCT USED FOR UNKNOWN INDICATION
     Dosage: UNK, UNKNOWN
     Route: 065
     Dates: start: 2004, end: 20070613
  2. OPTRUMA [Suspect]
     Dosage: UNK, UNKNOWN
     Route: 065
     Dates: start: 20070720
  3. ESBERIVEN FORT [Suspect]
     Indication: VARICOSE VEIN
     Dosage: UNK, UNKNOWN
     Route: 048
     Dates: start: 200701, end: 20070613
  4. ZESTRIL [Suspect]
     Indication: PRODUCT USED FOR UNKNOWN INDICATION
     Dosage: UNK, UNKNOWN
     Route: 065
     Dates: start: 2004
  5. ZESTRIL [Suspect]
     Dosage: UNK, UNKNOWN
     Route: 065
  6. PROXALYOC [Suspect]
     Indication: PRODUCT USED FOR UNKNOWN INDICATION
     Dosage: UNK, UNKNOWN
     Route: 065
     Dates: start: 2004
  7. AZANTAC [Suspect]
     Indication: PRODUCT USED FOR UNKNOWN INDICATION
     Dosage: UNK, UNKNOWN
     Route: 065
     Dates: start: 2004

REACTIONS (2)
  - Hepatitis [Recovered/Resolved]
  - Asthenia [Recovered/Resolved]
